FAERS Safety Report 21518526 (Version 1)
Quarter: 2022Q4

REPORT INFORMATION
  Report Type: Spontaneous
  Country: JP (occurrence: JP)
  Receive Date: 20221028
  Receipt Date: 20221028
  Transmission Date: 20230112
  Serious: Yes (Hospitalization)
  Sender: FDA-Public Use
  Company Number: JP-SA-2022SA408337

PATIENT
  Age: 79 Year
  Sex: Male

DRUGS (2)
  1. KEVZARA [Suspect]
     Active Substance: SARILUMAB
     Indication: Rheumatoid arthritis
     Dosage: 200 MG, QOW
     Route: 058
  2. BREDININ OD [Concomitant]
     Indication: Rheumatoid arthritis
     Dosage: 50 MG, TID
     Route: 048

REACTIONS (2)
  - Asthenia [Unknown]
  - Marasmus [Unknown]

NARRATIVE: CASE EVENT DATE: 20220922
